FAERS Safety Report 20378625 (Version 1)
Quarter: 2022Q1

REPORT INFORMATION
  Report Type: Report from Study
  Country: IE (occurrence: IE)
  Receive Date: 20220126
  Receipt Date: 20220126
  Transmission Date: 20220423
  Serious: Yes (Death, Other)
  Sender: FDA-Public Use
  Company Number: IE-AstraZeneca-2022A040309

PATIENT
  Sex: Male

DRUGS (15)
  1. SYNAGIS [Suspect]
     Active Substance: PALIVIZUMAB
     Indication: Bronchopulmonary dysplasia
     Route: 030
     Dates: start: 20211027, end: 20220122
  2. BUDESONIDE [Suspect]
     Active Substance: BUDESONIDE
     Indication: Product used for unknown indication
     Route: 055
  3. CLONIDINE [Concomitant]
     Active Substance: CLONIDINE
     Route: 050
  4. BACLOFEN [Concomitant]
     Active Substance: BACLOFEN
     Dosage: 1 ML
     Route: 050
  5. CLONAZEPAM [Concomitant]
     Active Substance: CLONAZEPAM
     Dosage: 5 ML
     Route: 050
  6. LANSOPRAZOLE [Concomitant]
     Active Substance: LANSOPRAZOLE
     Dosage: 7.5 MG
     Route: 050
  7. GABAPENTIN [Concomitant]
     Active Substance: GABAPENTIN
     Dosage: 5.6 ML
     Route: 050
  8. MOVICOL [Concomitant]
     Active Substance: POLYETHYLENE GLYCOL 3350\POTASSIUM CHLORIDE\SODIUM BICARBONATE\SODIUM CHLORIDE
     Dosage: 1 APPLICATION
     Route: 050
  9. SCOPODERM PATCH [Concomitant]
     Dosage: 1 APPLICATION, ON ALTERNATE DAYS
     Route: 050
  10. KEPPRA [Concomitant]
     Active Substance: LEVETIRACETAM
     Route: 050
  11. EPILIM [Concomitant]
     Active Substance: VALPROATE SODIUM
     Route: 050
  12. AZITHROMYCIN [Concomitant]
     Active Substance: AZITHROMYCIN
     Dosage: 1.75 ML ALTERNATE DAY
     Route: 050
  13. ATROVENT [Concomitant]
     Active Substance: IPRATROPIUM BROMIDE
     Dosage: 1 N/A
     Route: 050
  14. ALBUTEROL [Concomitant]
     Active Substance: ALBUTEROL
     Dosage: 1 N/A
     Route: 050
  15. SALINE [Concomitant]
     Active Substance: SODIUM CHLORIDE
     Dosage: 1 N/A PRN (AS REQUIRED)
     Route: 050

REACTIONS (1)
  - Death [Fatal]
